FAERS Safety Report 4796369-9 (Version None)
Quarter: 2005Q4

REPORT INFORMATION
  Report Type: 
  Country: None (occurrence: None)
  Receive Date: 20051006
  Receipt Date: 20051006
  Transmission Date: 20060501
  Serious: Yes (Life-Threatening, Hospitalization)
  Sender: FDA-Public Use
  Company Number: None

PATIENT
  Age: 50 Year
  Sex: Male
  Weight: 100 kg

DRUGS (2)
  1. GLARGINE INSULIN [Suspect]
     Indication: DIABETES MELLITUS INSULIN-DEPENDENT
     Dosage: 120 U SQ QHS
     Route: 058
  2. ANTIHYPERTENSIVE MEDICATIONS [Concomitant]

REACTIONS (14)
  - ABDOMINAL PAIN [None]
  - ASTHENIA [None]
  - BLOOD GLUCOSE INCREASED [None]
  - BLOOD KETONE BODY [None]
  - BLOOD POTASSIUM INCREASED [None]
  - DEHYDRATION [None]
  - DIABETIC KETOACIDOSIS [None]
  - DRUG DOSE OMISSION [None]
  - GLUCOSE URINE PRESENT [None]
  - PAIN [None]
  - POLYDIPSIA [None]
  - POLYURIA [None]
  - TREATMENT NONCOMPLIANCE [None]
  - URINE KETONE BODY PRESENT [None]
